FAERS Safety Report 9785760 (Version 5)
Quarter: 2014Q1

REPORT INFORMATION
  Report Type: Spontaneous
  Country: KR (occurrence: None)
  Receive Date: 20131224
  Receipt Date: 20140225
  Transmission Date: 20141002
  Serious: Yes (Other)
  Sender: FDA-Public Use
  Company Number: 2013KR002462

PATIENT
  Age: 51 Year
  Sex: Female
  Weight: 60 kg

DRUGS (5)
  1. PONATINIB [Suspect]
     Indication: CHRONIC MYELOID LEUKAEMIA
     Route: 048
     Dates: start: 20110107, end: 20130313
  2. LEVOTHYROXINE SODIUM (LEVOTHYROXINE SODIUM) [Concomitant]
  3. ASPIRIN (ACETYLSALICYLIC ACID) [Concomitant]
  4. CLOPIDOGREL (CLOPIDOGREL HYDROCHLORIDE) [Concomitant]
  5. NITROGLYCERIE (GLYCERYL TRINITRATE) [Concomitant]

REACTIONS (4)
  - Arteriospasm coronary [None]
  - Angina pectoris [None]
  - Hypertension [None]
  - Autoimmune thyroiditis [None]
